FAERS Safety Report 14811956 (Version 2)
Quarter: 2018Q3

REPORT INFORMATION
  Report Type: Report from Study
  Country: US (occurrence: US)
  Receive Date: 20180425
  Receipt Date: 20180720
  Transmission Date: 20181010
  Serious: No
  Sender: FDA-Public Use
  Company Number: US-AMGEN-USASL2018048213

PATIENT
  Age: 63 Year
  Sex: Male

DRUGS (2)
  1. REPATHA [Suspect]
     Active Substance: EVOLOCUMAB
     Indication: HYPERCHOLESTEROLAEMIA
     Dosage: 140 MG, Q2WK
     Route: 058
     Dates: start: 20180207
  2. REPATHA [Suspect]
     Active Substance: EVOLOCUMAB
     Dosage: 140 MG, QMO
     Route: 058

REACTIONS (4)
  - Sinus disorder [Not Recovered/Not Resolved]
  - Off label use [Unknown]
  - Flank pain [Unknown]
  - Rash [Unknown]

NARRATIVE: CASE EVENT DATE: 201803
